FAERS Safety Report 7725741-X (Version None)
Quarter: 2011Q3

REPORT INFORMATION
  Report Type: 
  Country: None (occurrence: None)
  Receive Date: 20110902
  Receipt Date: 20110819
  Transmission Date: 20111222
  Serious: Yes (Congenital Anomaly, Other)
  Sender: FDA-Public Use
  Company Number: FR-JNJFOC-20110810852

PATIENT
  Sex: Female

DRUGS (2)
  1. TOPIRAMATE [Suspect]
     Indication: MATERNAL EXPOSURE DURING PREGNANCY
     Route: 064
  2. TEGRETOL [Suspect]
     Indication: MATERNAL EXPOSURE DURING PREGNANCY
     Route: 064

REACTIONS (9)
  - HYPOTONIA [None]
  - DISTURBANCE IN ATTENTION [None]
  - CONGENITAL ANOMALY [None]
  - FOOT DEFORMITY [None]
  - UMBILICAL HERNIA [None]
  - EAR MALFORMATION [None]
  - MENTAL RETARDATION [None]
  - MATERNAL EXPOSURE DURING PREGNANCY [None]
  - BALANCE DISORDER [None]
